FAERS Safety Report 21495213 (Version 2)
Quarter: 2023Q2

REPORT INFORMATION
  Report Type: Report from Study
  Country: US (occurrence: US)
  Receive Date: 20221022
  Receipt Date: 20230407
  Transmission Date: 20230722
  Serious: No
  Sender: FDA-Public Use
  Company Number: US-ABBVIE-4144277

PATIENT
  Age: 57 Year
  Sex: Female

DRUGS (1)
  1. HUMIRA [Suspect]
     Active Substance: ADALIMUMAB
     Indication: Rheumatoid arthritis
     Dosage: CITRATE FREE
     Route: 058
     Dates: start: 20230322

REACTIONS (7)
  - Nausea [Recovering/Resolving]
  - Migraine [Recovered/Resolved]
  - Fatigue [Recovering/Resolving]
  - Diarrhoea [Recovering/Resolving]
  - Motion sickness [Recovering/Resolving]
  - Abdominal pain upper [Recovering/Resolving]
  - Sinus disorder [Recovered/Resolved]

NARRATIVE: CASE EVENT DATE: 20230322
